FAERS Safety Report 15736304 (Version 2)
Quarter: 2019Q2

REPORT INFORMATION
  Report Type: Spontaneous
  Country: US (occurrence: US)
  Receive Date: 20181218
  Receipt Date: 20190626
  Transmission Date: 20190711
  Serious: No
  Sender: FDA-Public Use
  Company Number: US-MYLANLABS-2018M1089503

PATIENT
  Sex: Female
  Weight: 104 kg

DRUGS (1)
  1. GLATIRAMER ACETATE INJECTION [Suspect]
     Active Substance: GLATIRAMER ACETATE
     Indication: MULTIPLE SCLEROSIS
     Dosage: UNK
     Route: 058
     Dates: start: 20181025

REACTIONS (2)
  - Erythema [Not Recovered/Not Resolved]
  - Pruritus generalised [Not Recovered/Not Resolved]

NARRATIVE: CASE EVENT DATE: 2018
